FAERS Safety Report 16535381 (Version 1)
Quarter: 2019Q3

REPORT INFORMATION
  Report Type: Report from Study
  Country: JP (occurrence: JP)
  Receive Date: 20190705
  Receipt Date: 20190705
  Transmission Date: 20191004
  Serious: Yes (Other)
  Sender: FDA-Public Use
  Company Number: JP-GILEAD-2019-0416888

PATIENT
  Age: 39 Year
  Sex: Male

DRUGS (18)
  1. EMTRICITABINE/RILPIVIRINE/TENOFOVIR ALAFENAMIDE [Concomitant]
     Active Substance: EMTRICITABINE\RILPIVIRINE HYDROCHLORIDE\TENOFOVIR ALAFENAMIDE FUMARATE
     Indication: HIV INFECTION
     Dosage: UNK
     Route: 048
  2. MAXALT [Concomitant]
     Active Substance: RIZATRIPTAN BENZOATE
     Indication: MIGRAINE
     Dosage: PERORAL MEDICINE
     Route: 048
     Dates: start: 20140416
  3. BIOFERMIN R [Concomitant]
     Active Substance: DIETARY SUPPLEMENT\PROBIOTICS
     Dosage: PERORAL MEDICINE, ANTIBIOTICS-RESISTANT LACTIC ACID BACTERIAE
     Route: 048
     Dates: start: 20160606, end: 20160805
  4. COR-TYZINE [Concomitant]
     Indication: SEASONAL ALLERGY
     Dosage: TETRAHYDROZOLINE HYDROCHLORIDE/PREDNISOLONE
     Route: 045
     Dates: start: 20180409, end: 20180423
  5. XYZAL [Concomitant]
     Active Substance: LEVOCETIRIZINE DIHYDROCHLORIDE
     Indication: SEASONAL ALLERGY
     Dosage: PERORAL MEDICINE
     Route: 048
     Dates: start: 20170219, end: 20190615
  6. ALESION [Concomitant]
     Active Substance: EPINASTINE HYDROCHLORIDE
     Indication: SEASONAL ALLERGY
     Route: 047
     Dates: start: 20170219, end: 20170615
  7. ZAFATEK [Concomitant]
     Active Substance: TRELAGLIPTIN SUCCINATE
     Indication: DIABETES MELLITUS
     Dosage: PERORAL MEDICINE
     Route: 048
     Dates: start: 20170426
  8. BENECID [Concomitant]
     Active Substance: PROBENECID
     Dosage: PERORAL MEDICINE
     Route: 048
     Dates: start: 20160606, end: 20160805
  9. ALLERMIST [Concomitant]
     Active Substance: FLUTICASONE FUROATE
     Indication: SEASONAL ALLERGY
     Route: 047
     Dates: start: 20170219, end: 20170415
  10. RUPAFIN [Concomitant]
     Active Substance: RUPATADINE FUMARATE
     Indication: SEASONAL ALLERGY
     Dosage: PERORAL MEDICINE
     Route: 048
     Dates: start: 20180409, end: 20180423
  11. PATANOL [Concomitant]
     Active Substance: OLOPATADINE HYDROCHLORIDE
     Indication: SEASONAL ALLERGY
     Route: 047
     Dates: start: 20190201
  12. EMTRICITABINE/RILPIVIRINE/TENOFOVIR DF [Suspect]
     Active Substance: EMTRICITABINE\RILPIVIRINE\TENOFOVIR DISOPROXIL FUMARATE
     Indication: HIV INFECTION
     Dosage: UNK, QD
     Route: 048
     Dates: start: 20160323, end: 20181111
  13. METGLUCO [Concomitant]
     Active Substance: METFORMIN HYDROCHLORIDE
     Indication: DIABETES MELLITUS
     Dosage: PERORAL MEDICINE
     Route: 048
     Dates: start: 20160203, end: 20160711
  14. RUPAFIN [Concomitant]
     Active Substance: RUPATADINE FUMARATE
     Dosage: PERORAL MEDICINE
     Route: 048
     Dates: start: 20190201
  15. CRESTOR [Concomitant]
     Active Substance: ROSUVASTATIN CALCIUM
     Indication: PRODUCT USED FOR UNKNOWN INDICATION
     Dosage: PERORAL MEDICINE
     Route: 048
     Dates: start: 20160511
  16. ALLELOCK [Concomitant]
     Active Substance: OLOPATADINE HYDROCHLORIDE
     Indication: SEASONAL ALLERGY
     Dosage: PERORAL MEDICINE
     Route: 048
     Dates: start: 20160213, end: 20160711
  17. ALESION [Concomitant]
     Active Substance: EPINASTINE HYDROCHLORIDE
     Route: 047
     Dates: start: 20180409, end: 20180423
  18. NASONEX [Concomitant]
     Active Substance: MOMETASONE FUROATE
     Indication: SEASONAL ALLERGY
     Route: 045
     Dates: start: 20190201

REACTIONS (3)
  - Cellulitis [Recovering/Resolving]
  - Pruritus [Recovering/Resolving]
  - Syphilis [Recovering/Resolving]

NARRATIVE: CASE EVENT DATE: 20160323
